FAERS Safety Report 15067918 (Version 1)
Quarter: 2018Q2

REPORT INFORMATION
  Report Type: Spontaneous
  Country: US (occurrence: US)
  Receive Date: 20180626
  Receipt Date: 20180626
  Transmission Date: 20180711
  Serious: No
  Sender: FDA-Public Use
  Company Number: US-DSJP-DSU-2017-156398

PATIENT
  Sex: Female

DRUGS (1)
  1. WELCHOL [Suspect]
     Active Substance: COLESEVELAM HYDROCHLORIDE
     Indication: GASTROINTESTINAL MOTILITY DISORDER
     Dosage: 625 MG, QD
     Route: 048
     Dates: start: 2007

REACTIONS (7)
  - Abdominal pain upper [Unknown]
  - Treatment noncompliance [Unknown]
  - Unevaluable event [Unknown]
  - Dizziness [Unknown]
  - Off label use [Not Recovered/Not Resolved]
  - General physical condition abnormal [Unknown]
  - Constipation [Unknown]

NARRATIVE: CASE EVENT DATE: 2007
